FAERS Safety Report 17822103 (Version 1)
Quarter: 2020Q2

REPORT INFORMATION
  Report Type: Report from Study
  Country: JP (occurrence: JP)
  Receive Date: 20200526
  Receipt Date: 20200526
  Transmission Date: 20200714
  Serious: Yes (Death)
  Sender: FDA-Public Use
  Company Number: JP-INGENUS PHARMACEUTICALS, LLC-2020INF000086

PATIENT
  Sex: Female

DRUGS (2)
  1. TS-1 [Suspect]
     Active Substance: GIMERACIL\OTERACIL\TEGAFUR
     Indication: NON-SMALL CELL LUNG CANCER
     Dosage: UNK, BID, ON DAYS 1 TO 14
     Route: 048
  2. CARBOPLATIN. [Suspect]
     Active Substance: CARBOPLATIN
     Indication: NON-SMALL CELL LUNG CANCER
     Dosage: AREA UNDER THE CONCENTRATION TIME CURVE [AUC] 5 MG/ML/MIN ON DAY 1
     Route: 065

REACTIONS (1)
  - Pulmonary embolism [Fatal]
